FAERS Safety Report 25214280 (Version 1)
Quarter: 2025Q2

REPORT INFORMATION
  Report Type: Report from Study
  Country: CA (occurrence: CA)
  Receive Date: 20250418
  Receipt Date: 20250418
  Transmission Date: 20250717
  Serious: Yes (Other)
  Sender: TEVA
  Company Number: CA-TEVA-VS-3321369

PATIENT
  Age: 58 Year
  Sex: Female

DRUGS (2)
  1. AJOVY [Suspect]
     Active Substance: FREMANEZUMAB-VFRM
     Indication: Migraine prophylaxis
     Dosage: LAST DOSE ADMINISTERED DATE 2025-03-10
     Route: 058
     Dates: start: 20220725
  2. EXCEDRIN [Suspect]
     Active Substance: ACETAMINOPHEN\ASPIRIN\CAFFEINE
     Indication: Product used for unknown indication
     Route: 065

REACTIONS (5)
  - Drug dependence [Unknown]
  - Insurance issue [Unknown]
  - Inability to afford medication [Unknown]
  - Inappropriate schedule of product administration [Unknown]
  - Renal disorder [Unknown]
